FAERS Safety Report 19373056 (Version 5)
Quarter: 2021Q3

REPORT INFORMATION
  Report Type: Report from Study
  Country: MA (occurrence: MA)
  Receive Date: 20210604
  Receipt Date: 20210826
  Transmission Date: 20211014
  Serious: Yes (Death, Hospitalization, Other)
  Sender: FDA-Public Use
  Company Number: NVSC2021MA073903

PATIENT
  Age: 63 Year
  Sex: Female

DRUGS (1)
  1. REVOLADE [Suspect]
     Active Substance: ELTROMBOPAG OLAMINE
     Indication: THROMBOCYTOPENIA
     Dosage: 50 MG, TID
     Route: 048
     Dates: start: 20210322

REACTIONS (14)
  - Fatigue [Unknown]
  - Gait disturbance [Unknown]
  - Platelet count decreased [Unknown]
  - Speech disorder [Unknown]
  - Weight decreased [Unknown]
  - C-reactive protein increased [Unknown]
  - Dizziness [Unknown]
  - Somnolence [Unknown]
  - Pulmonary mass [Unknown]
  - Feeling abnormal [Unknown]
  - Incorrect dose administered [Unknown]
  - Condition aggravated [Fatal]
  - Erythema [Unknown]
  - Decreased appetite [Unknown]

NARRATIVE: CASE EVENT DATE: 20210623
